FAERS Safety Report 8791271 (Version 1)
Quarter: 2012Q4

REPORT INFORMATION
  Report Type: Spontaneous
  Country: GB (occurrence: None)
  Receive Date: 20120911
  Receipt Date: 20120911
  Transmission Date: 20130627
  Serious: Yes (Other)
  Sender: FDA-Public Use
  Company Number: VAL_00818_2012

PATIENT
  Sex: Female

DRUGS (1)
  1. CARBAMAZEPINE [Suspect]
     Indication: TRIGEMINAL NEURALGIA
     Dosage: df

REACTIONS (4)
  - Hepatic function abnormal [None]
  - Headache [None]
  - Pyrexia [None]
  - Drug reaction with eosinophilia and systemic symptoms [None]
